FAERS Safety Report 5909419-0 (Version None)
Quarter: 2008Q4

REPORT INFORMATION
  Report Type: 
  Country: None (occurrence: None)
  Receive Date: 20081006
  Receipt Date: 20080924
  Transmission Date: 20090506
  Serious: Yes (Hospitalization)
  Sender: FDA-Public Use
  Company Number: CL-PFIZER INC-2008081236

PATIENT
  Sex: Male

DRUGS (1)
  1. SUTENT [Suspect]
     Route: 048

REACTIONS (4)
  - DIARRHOEA [None]
  - HYPERTENSION [None]
  - NEPHRITIC SYNDROME [None]
  - THROMBOCYTOPENIA [None]
